FAERS Safety Report 8131354 (Version 2)
Quarter: 2013Q1

REPORT INFORMATION
  Report Type: Spontaneous
  Country: US (occurrence: US)
  Receive Date: 20110912
  Receipt Date: 20130208
  Transmission Date: 20140127
  Serious: Yes (Hospitalization)
  Sender: FDA-Public Use
  Company Number: US-GLAXOSMITHKLINE-A0897064A

PATIENT
  Age: 55 Year
  Sex: Male

DRUGS (8)
  1. AVANDIA [Suspect]
     Indication: TYPE 2 DIABETES MELLITUS
     Dosage: 4MG PER DAY
     Route: 048
     Dates: start: 20071106, end: 20090204
  2. METFORMIN [Concomitant]
  3. LYRICA [Concomitant]
  4. LOVASTATIN [Concomitant]
  5. CYMBALTA [Concomitant]
  6. BUSPAR [Concomitant]
  7. DIOVAN [Concomitant]
  8. TOPROL [Concomitant]

REACTIONS (3)
  - Cerebrovascular accident [Not Recovered/Not Resolved]
  - Blindness [Unknown]
  - Cardiovascular disorder [Unknown]
